FAERS Safety Report 13491054 (Version 4)
Quarter: 2017Q3

REPORT INFORMATION
  Report Type: Spontaneous
  Country: BR (occurrence: BR)
  Receive Date: 20170427
  Receipt Date: 20170810
  Transmission Date: 20171127
  Serious: Yes (Death, Hospitalization)
  Sender: FDA-Public Use
  Company Number: BR-ELI_LILLY_AND_COMPANY-BR201703002428

PATIENT
  Sex: Male

DRUGS (2)
  1. FORTEO [Suspect]
     Active Substance: TERIPARATIDE
     Indication: BONE DISORDER
     Dosage: UNK, UNKNOWN
     Route: 065
  2. FORTEO [Suspect]
     Active Substance: TERIPARATIDE
     Indication: OSTEOPOROSIS
     Dosage: UNK, UNKNOWN
     Route: 065
     Dates: end: 20170412

REACTIONS (9)
  - Death [Fatal]
  - Pneumonia [Unknown]
  - Incorrect drug administration duration [Unknown]
  - Aspiration bronchial [Unknown]
  - Parkinson^s disease [Unknown]
  - Choking [Unknown]
  - Gastric disorder [Unknown]
  - Cough [Unknown]
  - Vomiting [Unknown]
